FAERS Safety Report 18952428 (Version 2)
Quarter: 2024Q2

REPORT INFORMATION
  Report Type: Spontaneous
  Country: JP (occurrence: JP)
  Receive Date: 20210301
  Receipt Date: 20240520
  Transmission Date: 20240716
  Serious: Yes (Death, Other)
  Sender: FDA-Public Use
  Company Number: JP-BRISTOL-MYERS SQUIBB COMPANY-BMS-2021-020146

PATIENT
  Age: 64 Year
  Sex: Female
  Weight: 49 kg

DRUGS (3)
  1. NIVOLUMAB [Suspect]
     Active Substance: NIVOLUMAB
     Indication: Renal cell carcinoma
     Dosage: UNK
  2. IPILIMUMAB [Suspect]
     Active Substance: IPILIMUMAB
     Indication: Renal cell carcinoma
  3. INLYTA [Suspect]
     Active Substance: AXITINIB
     Indication: Product used for unknown indication
     Dosage: 4 MILLIGRAM, BID

REACTIONS (1)
  - Death [Fatal]
